FAERS Safety Report 6259794-5 (Version None)
Quarter: 2009Q3

REPORT INFORMATION
  Report Type: 
  Country: None (occurrence: None)
  Receive Date: 20090706
  Receipt Date: 20090706
  Transmission Date: 20100115
  Serious: Yes (Other)
  Sender: FDA-Public Use
  Company Number: None

PATIENT
  Sex: Male
  Weight: 74.8435 kg

DRUGS (1)
  1. ZICAM NASAL SPRAY ZICAM [Suspect]
     Indication: INFLUENZA
     Dosage: ONE SPRAY TWICE NASAL
     Route: 045
     Dates: start: 20090331, end: 20090331

REACTIONS (1)
  - ANOSMIA [None]
